FAERS Safety Report 20187572 (Version 3)
Quarter: 2022Q2

REPORT INFORMATION
  Report Type: Report from Study
  Country: TH (occurrence: TH)
  Receive Date: 20211215
  Receipt Date: 20220602
  Transmission Date: 20220721
  Serious: Yes (Death, Hospitalization, Other)
  Sender: FDA-Public Use
  Company Number: TH-002147023-NVSC2020TH360585

PATIENT

DRUGS (2)
  1. RUXOLITINIB [Suspect]
     Active Substance: RUXOLITINIB
     Indication: Myelofibrosis
     Dosage: UNK
     Route: 048
  2. RUXOLITINIB [Suspect]
     Active Substance: RUXOLITINIB
     Indication: Polycythaemia vera

REACTIONS (9)
  - Vestibular neuronitis [Unknown]
  - Gouty arthritis [Unknown]
  - Nocardiosis [Unknown]
  - Second primary malignancy [Unknown]
  - Metastases to bone marrow [Unknown]
  - Bone cancer [Unknown]
  - Myelofibrosis [Fatal]
  - Polycythaemia vera [Fatal]
  - Urinary tract infection [Recovered/Resolved]

NARRATIVE: CASE EVENT DATE: 20201130
